FAERS Safety Report 21693173 (Version 1)
Quarter: 2022Q4

REPORT INFORMATION
  Report Type: Other
  Country: NL (occurrence: NL)
  Receive Date: 20221207
  Receipt Date: 20221207
  Transmission Date: 20230112
  Serious: Yes (Life-Threatening, Hospitalization)
  Sender: FDA-Public Use
  Company Number: None

PATIENT
  Sex: Male
  Weight: 78.5 kg

DRUGS (19)
  1. IBUPROFEN [Suspect]
     Active Substance: IBUPROFEN
     Indication: Pain
     Dosage: UNK (CAPSULE)
     Route: 065
     Dates: start: 20200101, end: 20221103
  2. DICLOFENAC [Suspect]
     Active Substance: DICLOFENAC
     Indication: Pain
     Dosage: UNK
     Route: 065
     Dates: start: 20200101, end: 20221103
  3. METFORMIN [Suspect]
     Active Substance: METFORMIN HYDROCHLORIDE
     Indication: Type 2 diabetes mellitus
     Dosage: 1000 MILLIGRAM, EVERY 8 HOURS (TABLET) (3DD)
     Route: 065
     Dates: start: 20190101, end: 20221103
  4. CYANOCOBALAMIN [Concomitant]
     Active Substance: CYANOCOBALAMIN
     Indication: Product used for unknown indication
     Dosage: UNK
     Route: 065
  5. SUNITINIB [Concomitant]
     Active Substance: SUNITINIB
     Indication: Product used for unknown indication
     Dosage: 12.5 MILLIGRAM PER DAY (1DD1)
     Route: 065
  6. SUNITINIB [Concomitant]
     Active Substance: SUNITINIB
     Dosage: 25 MILLIGRAM PER DAY (1DD1)
     Route: 065
  7. FUROSEMIDE [Concomitant]
     Active Substance: FUROSEMIDE
     Indication: Product used for unknown indication
     Dosage: 40 MILLIGRAM PER DAY (1DD)
     Route: 048
  8. SPIRONOLACTONE [Concomitant]
     Active Substance: SPIRONOLACTONE
     Indication: Product used for unknown indication
     Dosage: 12.5 MILLIGRAM PER DAY (1DD1)
     Route: 065
  9. ROSUVASTATIN [Concomitant]
     Active Substance: ROSUVASTATIN
     Indication: Product used for unknown indication
     Dosage: 40 MILLIGRAM PER DAY (1DD1)
     Route: 065
  10. VITAMIN D3 [Concomitant]
     Active Substance: CHOLECALCIFEROL
     Indication: Product used for unknown indication
     Dosage: UNK
     Route: 065
  11. PANTOPRAZOLE [Concomitant]
     Active Substance: PANTOPRAZOLE
     Indication: Product used for unknown indication
     Dosage: 40 MILLIGRAM PER DAY (1DD1)
     Route: 065
  12. METOCLOPRAMIDE [Concomitant]
     Active Substance: METOCLOPRAMIDE
     Indication: Product used for unknown indication
     Dosage: 10 MILLIGRAM, EVERY 8 HOURS (3DD)
     Route: 065
  13. IVABRADINE [Concomitant]
     Active Substance: IVABRADINE
     Indication: Product used for unknown indication
     Dosage: 5 MILLIGRAM PER DAY (1DD1)
     Route: 065
  14. SACUBITRIL\VALSARTAN [Concomitant]
     Active Substance: SACUBITRIL\VALSARTAN
     Indication: Product used for unknown indication
     Dosage: 1 DOSAGE FORM, EVERY 12 HRS (2DD)
     Route: 065
  15. NIVOLUMAB [Concomitant]
     Active Substance: NIVOLUMAB
     Indication: Product used for unknown indication
     Dosage: UNK
     Route: 065
  16. INSULIN GLARGINE [Concomitant]
     Active Substance: INSULIN GLARGINE
     Indication: Product used for unknown indication
     Dosage: UNK (INSULINE GLARGINE 300E/ML)
     Route: 065
  17. XGEVA [Concomitant]
     Active Substance: DENOSUMAB
     Indication: Product used for unknown indication
     Dosage: 1 DOSAGE FORM, EVERY 4 WEEKS
     Route: 065
  18. IPILIMUMAB [Concomitant]
     Active Substance: IPILIMUMAB
     Indication: Product used for unknown indication
     Dosage: UNK
     Route: 065
  19. NOVORAPID [Concomitant]
     Active Substance: INSULIN ASPART
     Indication: Product used for unknown indication
     Dosage: UNK
     Route: 065

REACTIONS (2)
  - Lactic acidosis [Recovered/Resolved]
  - Renal failure [Recovered/Resolved]
